FAERS Safety Report 9458260 (Version 2)
Quarter: 2013Q3

REPORT INFORMATION
  Report Type: Spontaneous
  Country: FR (occurrence: FR)
  Receive Date: 20130814
  Receipt Date: 20130918
  Transmission Date: 20140515
  Serious: Yes (Life-Threatening, Other)
  Sender: FDA-Public Use
  Company Number: FR-PFIZER INC-2013234367

PATIENT
  Age: 64 Year
  Sex: Female
  Weight: 45 kg

DRUGS (1)
  1. ALDACTONE [Suspect]
     Indication: EYE OEDEMA
     Dosage: 50 MG DAILY
     Dates: start: 20130603, end: 20130703

REACTIONS (1)
  - Blood potassium decreased [Recovered/Resolved]
